FAERS Safety Report 9473679 (Version 3)
Quarter: 2014Q3

REPORT INFORMATION
  Report Type: Spontaneous
  Country: US (occurrence: US)
  Receive Date: 20130823
  Receipt Date: 20140808
  Transmission Date: 20150326
  Serious: No
  Sender: FDA-Public Use
  Company Number: US-BRISTOL-MYERS SQUIBB COMPANY-16880197

PATIENT
  Age: 64 Year
  Sex: Female
  Weight: 90.7 kg

DRUGS (2)
  1. SPRYCEL [Suspect]
     Active Substance: DASATINIB
     Indication: CHRONIC MYELOID LEUKAEMIA
     Route: 048
  2. ALLOPURINOL. [Suspect]
     Active Substance: ALLOPURINOL

REACTIONS (14)
  - Fatigue [Unknown]
  - Bronchitis [Unknown]
  - Cough [Unknown]
  - Somnolence [Unknown]
  - Flatulence [Unknown]
  - Dizziness [Unknown]
  - Hyperhidrosis [Unknown]
  - Hypersensitivity [Unknown]
  - Arthralgia [Unknown]
  - Headache [Unknown]
  - Skin disorder [Unknown]
  - Nausea [Unknown]
  - Pyrexia [Unknown]
  - Alopecia [Unknown]
